FAERS Safety Report 5263103-8 (Version None)
Quarter: 2007Q1

REPORT INFORMATION
  Report Type: 
  Country: None (occurrence: None)
  Receive Date: 20070312
  Receipt Date: 20070228
  Transmission Date: 20070707
  Serious: Yes (Disabling, Other)
  Sender: FDA-Public Use
  Company Number: DE-PFIZER INC-2007008193

PATIENT
  Sex: Female

DRUGS (2)
  1. MEDROXYPROGESTERONE ACETATE [Suspect]
     Indication: CONTRACEPTION
     Dosage: FREQ:FIRST INJECTION
     Route: 030
     Dates: start: 20011101, end: 20011101
  2. MEDROXYPROGESTERONE ACETATE [Suspect]
     Dosage: FREQ:LAST INJECTION
     Route: 030
     Dates: start: 20061226, end: 20061226

REACTIONS (4)
  - ANXIETY [None]
  - BLOOD OESTROGEN DECREASED [None]
  - DEPRESSION [None]
  - PANIC ATTACK [None]
